FAERS Safety Report 5694818-5 (Version None)
Quarter: 2008Q2

REPORT INFORMATION
  Report Type: 
  Country: None (occurrence: None)
  Receive Date: 20080404
  Receipt Date: 20080401
  Transmission Date: 20081010
  Serious: Yes (Hospitalization, Other)
  Sender: FDA-Public Use
  Company Number: US-MERCK-0606USA00339

PATIENT
  Age: 66 Year
  Sex: Female
  Weight: 63 kg

DRUGS (18)
  1. FOSAMAX [Suspect]
     Indication: OSTEOPOROSIS
     Route: 048
     Dates: start: 19970101, end: 20020401
  2. FOSAMAX [Suspect]
     Route: 048
     Dates: start: 20020501, end: 20021101
  3. IMURAN [Concomitant]
     Indication: ARTHRITIS
     Route: 065
  4. MELLARIL [Concomitant]
     Indication: ANXIETY
     Route: 065
  5. PAMELOR [Concomitant]
     Indication: ANTIDEPRESSANT THERAPY
     Route: 065
  6. PLAQUENIL [Concomitant]
     Indication: ARTHRITIS
     Route: 065
     Dates: start: 19980728
  7. PREDNISONE [Concomitant]
     Indication: ARTHRITIS
     Route: 065
  8. PREDNISONE [Concomitant]
     Route: 065
  9. PREVACID [Concomitant]
     Indication: GASTRIC DISORDER
     Route: 065
  10. SLOW-MAG [Concomitant]
     Indication: ROUTINE HEALTH MAINTENANCE
     Route: 065
  11. SLOW-MAG [Concomitant]
     Indication: MINERAL SUPPLEMENTATION
     Route: 065
  12. RESTORIL [Concomitant]
     Indication: SLEEP DISORDER
     Route: 065
  13. VICODIN [Concomitant]
     Indication: PAIN
     Route: 065
  14. ZYPREXA [Concomitant]
     Indication: MENTAL DISORDER
     Route: 065
  15. ZYPREXA [Concomitant]
     Route: 065
  16. ZOLOFT [Concomitant]
     Indication: ANTIDEPRESSANT THERAPY
     Route: 065
  17. ZOLOFT [Concomitant]
     Route: 065
  18. ZOLOFT [Concomitant]
     Route: 065

REACTIONS (23)
  - ANXIETY [None]
  - ARTHROPATHY [None]
  - CATARACT [None]
  - CLOSTRIDIUM DIFFICILE COLITIS [None]
  - CONFUSIONAL STATE [None]
  - COUGH [None]
  - DEPRESSION [None]
  - DERMATITIS [None]
  - DUODENAL ULCER [None]
  - DYSPEPSIA [None]
  - GASTRIC DISORDER [None]
  - GASTROINTESTINAL DISORDER [None]
  - HEART RATE IRREGULAR [None]
  - HIP FRACTURE [None]
  - LOSS OF CONSCIOUSNESS [None]
  - MENOPAUSE [None]
  - MUSCULOSKELETAL DISORDER [None]
  - MYOCARDIAL INFARCTION [None]
  - NERVOUSNESS [None]
  - OSTEOMYELITIS [None]
  - OSTEONECROSIS [None]
  - OVERWEIGHT [None]
  - SKIN LESION [None]
